FAERS Safety Report 8968040 (Version 2)
Quarter: 2013Q1

REPORT INFORMATION
  Report Type: Spontaneous
  Country: US (occurrence: US)
  Receive Date: 20121217
  Receipt Date: 20130103
  Transmission Date: 20140127
  Serious: Yes (Other)
  Sender: FDA-Public Use
  Company Number: PHHY2012US115112

PATIENT
  Age: 73 Year
  Sex: Female

DRUGS (3)
  1. BUFFERIN EXTRA STRENGTH [Suspect]
     Indication: ARTHRITIS
     Dosage: 2 DF, DAILY
     Route: 048
  2. BUFFERIN REGULAR STRENGTH [Suspect]
     Indication: ARTHRITIS
     Dosage: 1 DF, DAILY
  3. DIOVAN [Concomitant]

REACTIONS (4)
  - Hypertension [Not Recovered/Not Resolved]
  - Diabetes mellitus [Not Recovered/Not Resolved]
  - Arthritis [Not Recovered/Not Resolved]
  - Incorrect drug administration duration [Unknown]
